FAERS Safety Report 5306948-8 (Version None)
Quarter: 2007Q2

REPORT INFORMATION
  Report Type: 
  Country: None (occurrence: None)
  Receive Date: 20070425
  Receipt Date: 20070326
  Transmission Date: 20071010
  Serious: Yes (Hospitalization)
  Sender: FDA-Public Use
  Company Number: FR-BAYER-200710218BFR

PATIENT
  Age: 83 Year
  Sex: Female

DRUGS (9)
  1. ACARBOSE [Suspect]
     Indication: UNEVALUABLE EVENT
     Route: 048
     Dates: start: 20060615, end: 20070204
  2. DI-ANTALVIC [Suspect]
     Indication: UNEVALUABLE EVENT
     Route: 048
     Dates: start: 20060615, end: 20070204
  3. TAHOR [Suspect]
     Indication: UNEVALUABLE EVENT
     Route: 048
     Dates: start: 20060615, end: 20070204
  4. MOGADON [Concomitant]
     Indication: UNEVALUABLE EVENT
     Route: 048
     Dates: start: 20060615, end: 20070204
  5. FUROSEMIDE [Concomitant]
     Indication: UNEVALUABLE EVENT
     Route: 065
  6. PREVISCAN [Concomitant]
     Indication: DEEP VEIN THROMBOSIS
     Route: 065
  7. FLECAINIDE ACETATE [Concomitant]
     Indication: UNEVALUABLE EVENT
     Route: 065
  8. ALLOPURINOL [Concomitant]
     Indication: UNEVALUABLE EVENT
     Route: 065
  9. TRIATEC [Concomitant]
     Indication: UNEVALUABLE EVENT
     Route: 065

REACTIONS (7)
  - ALANINE AMINOTRANSFERASE INCREASED [None]
  - ARRHYTHMIA [None]
  - ASPARTATE AMINOTRANSFERASE INCREASED [None]
  - CARDIAC FAILURE [None]
  - CYTOLYTIC HEPATITIS [None]
  - LUNG DISORDER [None]
  - VERTIGO [None]
